FAERS Safety Report 6122189-9 (Version None)
Quarter: 2009Q1

REPORT INFORMATION
  Report Type: 
  Country: None (occurrence: None)
  Receive Date: 20090316
  Receipt Date: 20090308
  Transmission Date: 20090719
  Serious: Yes (Other)
  Sender: FDA-Public Use
  Company Number: 211324

PATIENT
  Age: 1 Year
  Sex: Female

DRUGS (3)
  1. CARBOPLATIN MAYNE SOLUZIONS INIETTABILE (CARBOPLATIN) [Suspect]
     Indication: NEUROBLASTOMA
  2. (ETOPOSIDE) [Suspect]
     Indication: NEUROBLASTOMA
  3. BACTRIM [Suspect]
     Indication: ANTIFUNGAL PROPHYLAXIS

REACTIONS (1)
  - CLOSTRIDIUM DIFFICILE COLITIS [None]
